FAERS Safety Report 7176672-8 (Version None)
Quarter: 2010Q4

REPORT INFORMATION
  Report Type: 
  Country: None (occurrence: None)
  Receive Date: 20101207
  Receipt Date: 20101124
  Transmission Date: 20110411
  Serious: Yes (Other)
  Sender: FDA-Public Use
  Company Number: DSA_44419_2010

PATIENT
  Age: 50 Year
  Sex: Female

DRUGS (1)
  1. ATIVAN [Suspect]
     Indication: PRODUCT USED FOR UNKNOWN INDICATION
     Dosage: 12 MG QD ORAL
     Route: 048
     Dates: start: 20010101

REACTIONS (2)
  - CEREBRAL ATROPHY [None]
  - DRUG DEPENDENCE [None]
